FAERS Safety Report 18440317 (Version 1)
Quarter: 2020Q4

REPORT INFORMATION
  Report Type: Spontaneous
  Country: CN (occurrence: CN)
  Receive Date: 20201029
  Receipt Date: 20201029
  Transmission Date: 20210114
  Serious: Yes (Hospitalization)
  Sender: FDA-Public Use
  Company Number: CN-TOPROL-202000053

PATIENT
  Age: 75 Year
  Sex: Male

DRUGS (1)
  1. BETOLOC ZOK [Suspect]
     Active Substance: METOPROLOL SUCCINATE
     Indication: CARDIAC FAILURE
     Route: 048
     Dates: start: 20200921, end: 20200927

REACTIONS (3)
  - Asthenia [Recovering/Resolving]
  - Decreased activity [Unknown]
  - Balance disorder [Unknown]

NARRATIVE: CASE EVENT DATE: 20200923
